FAERS Safety Report 9857472 (Version 1)
Quarter: 2014Q1

REPORT INFORMATION
  Report Type: Spontaneous
  Country: US (occurrence: US)
  Receive Date: 20140131
  Receipt Date: 20140131
  Transmission Date: 20141002
  Serious: Yes (Death, Hospitalization)
  Sender: FDA-Public Use
  Company Number: US-PAR PHARMACEUTICAL, INC-2014SCPR008134

PATIENT
  Age: 36 Year
  Sex: Male

DRUGS (1)
  1. FENTANYL TRANSDERMAL SYSTEM [Suspect]
     Indication: PRODUCT USED FOR UNKNOWN INDICATION
     Dosage: UNK, UNKNOWN
     Route: 048

REACTIONS (10)
  - Death [Fatal]
  - Brain herniation [Fatal]
  - Cardio-respiratory arrest [Fatal]
  - Brain injury [Fatal]
  - Renal failure acute [Fatal]
  - Diabetes insipidus [Fatal]
  - Atelectasis [Fatal]
  - Hypoglycaemia [Fatal]
  - Drug abuse [Fatal]
  - Overdose [Fatal]
